FAERS Safety Report 9306099 (Version 2)
Quarter: 2013Q2

REPORT INFORMATION
  Report Type: Spontaneous
  Country: RO (occurrence: RO)
  Receive Date: 20130523
  Receipt Date: 20130523
  Transmission Date: 20140414
  Serious: Yes (Death, Hospitalization)
  Sender: FDA-Public Use
  Company Number: RO-TEVA-404187ISR

PATIENT
  Age: 64 Year
  Sex: Female

DRUGS (3)
  1. CARBOPLATIN TEVA [Suspect]
     Indication: BLADDER CANCER
     Dosage: 450 MILLIGRAM DAILY;
     Route: 042
     Dates: start: 20130424, end: 20130424
  2. GEMCITABINE FRESENIUS [Concomitant]
     Indication: BLADDER CANCER
     Dosage: DAY 1: 1000MG, 30 MINUTES
     Route: 042
     Dates: start: 20130423, end: 20130423
  3. GEMCITABINE FRESENIUS [Concomitant]
     Dosage: 1000 MG/M2 30 MIN IV DAY 1
     Route: 042
     Dates: start: 20130429, end: 20130429

REACTIONS (4)
  - Thrombocytopenia [Fatal]
  - Leukopenia [Fatal]
  - Haematuria [Fatal]
  - Pyrexia [Fatal]
